FAERS Safety Report 7393935-1 (Version None)
Quarter: 2011Q1

REPORT INFORMATION
  Report Type: 
  Country: None (occurrence: None)
  Receive Date: 20110325
  Receipt Date: 20100829
  Transmission Date: 20110831
  Serious: No
  Sender: FDA-Public Use
  Company Number: NXG-10-004

PATIENT
  Sex: Male

DRUGS (1)
  1. POLYETHYLENE GLYCOL 3350 [Suspect]
     Indication: CONSTIPATION
     Dosage: 17GM IN 8 OZ WATER/DAY

REACTIONS (3)
  - PRODUCT MEASURED POTENCY ISSUE [None]
  - DRUG EFFECT DECREASED [None]
  - PRODUCT QUALITY ISSUE [None]
